FAERS Safety Report 7012797-5 (Version None)
Quarter: 2010Q3

REPORT INFORMATION
  Report Type: 
  Country: None (occurrence: None)
  Receive Date: 20100924
  Receipt Date: 20100916
  Transmission Date: 20110219
  Serious: Yes (Death, Life-Threatening)
  Sender: FDA-Public Use
  Company Number: B0562687A

PATIENT
  Sex: Female

DRUGS (6)
  1. ZOVIRAX [Suspect]
     Indication: NECROTISING RETINITIS
     Dosage: 375MG PER DAY
     Route: 042
     Dates: start: 20090217, end: 20090218
  2. UNSPECIFIED DRUG [Suspect]
     Indication: PRODUCT USED FOR UNKNOWN INDICATION
     Route: 065
  3. TAKEPRON [Concomitant]
     Indication: PRODUCT USED FOR UNKNOWN INDICATION
     Dosage: 15MG PER DAY
     Route: 065
     Dates: end: 20090219
  4. ASPIRIN [Concomitant]
     Indication: PRODUCT USED FOR UNKNOWN INDICATION
     Dosage: 100MG PER DAY
     Route: 048
     Dates: end: 20090218
  5. METHYCOBAL [Concomitant]
     Indication: PRODUCT USED FOR UNKNOWN INDICATION
     Dosage: 1500MCG PER DAY
     Route: 065
     Dates: end: 20090219
  6. ALOSITOL [Concomitant]
     Indication: PRODUCT USED FOR UNKNOWN INDICATION
     Dosage: 100MG PER DAY
     Route: 048
     Dates: end: 20090219

REACTIONS (17)
  - BLISTER [None]
  - BLOOD BLISTER [None]
  - CHAPPED LIPS [None]
  - CONVULSION [None]
  - DISSEMINATED INTRAVASCULAR COAGULATION [None]
  - GASTROINTESTINAL HAEMORRHAGE [None]
  - GENITAL EROSION [None]
  - INFECTION [None]
  - MUCOSAL EROSION [None]
  - MULTI-ORGAN FAILURE [None]
  - NIKOLSKY'S SIGN [None]
  - ORAL PAIN [None]
  - PETECHIAE [None]
  - RESPIRATORY DISORDER [None]
  - SKIN EROSION [None]
  - STEVENS-JOHNSON SYNDROME [None]
  - TOXIC EPIDERMAL NECROLYSIS [None]
